FAERS Safety Report 5315533-3 (Version None)
Quarter: 2007Q2

REPORT INFORMATION
  Report Type: 
  Country: None (occurrence: None)
  Receive Date: 20070501
  Receipt Date: 20070501
  Transmission Date: 20071010
  Serious: Yes (Life-Threatening, Hospitalization, Other)
  Sender: FDA-Public Use
  Company Number: None

PATIENT
  Sex: Female
  Weight: 72.5755 kg

DRUGS (1)
  1. DIOVAN HCT [Suspect]
     Indication: BLOOD PRESSURE INCREASED
     Dosage: 1 TABLET  DAILY  PO
     Route: 048
     Dates: start: 20070206, end: 20070426

REACTIONS (4)
  - FEAR [None]
  - FOOD AVERSION [None]
  - INSOMNIA [None]
  - THINKING ABNORMAL [None]
